FAERS Safety Report 18734573 (Version 2)
Quarter: 2021Q1

REPORT INFORMATION
  Report Type: Spontaneous
  Country: IN (occurrence: IN)
  Receive Date: 20210113
  Receipt Date: 20210217
  Transmission Date: 20210419
  Serious: Yes (Life-Threatening, Hospitalization, Other)
  Sender: FDA-Public Use
  Company Number: IN-ALVOGEN-2021-ALVOGEN-116070

PATIENT
  Age: 36 Year
  Sex: Female

DRUGS (2)
  1. ROPIVACAINE HYDROCHLORIDE. [Suspect]
     Active Substance: ROPIVACAINE HYDROCHLORIDE
     Indication: EPIDURAL ANALGESIA
     Dosage: 10 CC; EPIDURAL CATHETER WAS INSERTED USING 18G NEEDLE IN L3/L4 SPACE
     Route: 008
  2. FENTANYL. [Suspect]
     Active Substance: FENTANYL
     Indication: EPIDURAL ANALGESIA
     Dosage: 2 UG/ML; EPIDURAL CATHETER WAS INSERTED USING 18G NEEDLE IN L3/L4 SPACE
     Route: 008

REACTIONS (9)
  - Vasoconstriction [Recovered/Resolved]
  - Hypotension [Recovered/Resolved]
  - Dysphagia [Recovered/Resolved]
  - Incorrect route of product administration [Recovered/Resolved]
  - Caesarean section [Unknown]
  - Accidental exposure to product [Recovered/Resolved]
  - Choking sensation [Recovered/Resolved]
  - Tachycardia [Recovered/Resolved]
  - Maternal exposure during delivery [Unknown]
